FAERS Safety Report 9998291 (Version 1)
Quarter: 2014Q1

REPORT INFORMATION
  Report Type: Spontaneous
  Country: US (occurrence: US)
  Receive Date: 20140312
  Receipt Date: 20140312
  Transmission Date: 20141002
  Serious: Yes (Hospitalization)
  Sender: FDA-Public Use
  Company Number: US-AMGEN-USASP2014016789

PATIENT
  Age: 95 Year
  Sex: Male
  Weight: 77.1 kg

DRUGS (10)
  1. PROCRIT [Suspect]
     Indication: ANAEMIA
     Dosage: 10000 UNIT, QWK
     Route: 058
     Dates: start: 2013
  2. DIOVAN [Concomitant]
     Dosage: 80 MG, ONCE DAILY
     Route: 048
  3. FUROSEMIDE [Concomitant]
     Dosage: 40 MG, ONCE DAILY
     Route: 048
  4. PREDNISONE [Concomitant]
     Dosage: 5 MG, ONCE DAILY
     Route: 048
  5. ASPIRIN [Concomitant]
     Dosage: 81 MG, 3 TIMES/WK
     Route: 048
  6. PRANDIN                            /00882701/ [Concomitant]
     Indication: DIABETES MELLITUS
     Dosage: 2 MG, BID AND AS NEEDED
     Route: 048
  7. FERROUS SULFATE [Concomitant]
     Indication: ANAEMIA
     Dosage: 325 MG, BID
     Route: 048
  8. LOVASTATIN [Concomitant]
     Indication: BLOOD CHOLESTEROL INCREASED
     Dosage: 40 MG, ONCE DAILY
     Route: 048
  9. LOVASTATIN [Concomitant]
     Indication: HYPERTENSION
  10. TRAMADOL [Concomitant]
     Indication: PAIN
     Dosage: 50 MG, AS NECESSARY
     Route: 048

REACTIONS (5)
  - Fall [Recovered/Resolved]
  - Joint injury [Recovering/Resolving]
  - Herpes zoster [Recovering/Resolving]
  - Decubitus ulcer [Recovering/Resolving]
  - Asthenia [Unknown]
